FAERS Safety Report 5589366-7 (Version None)
Quarter: 2008Q1

REPORT INFORMATION
  Report Type: 
  Country: None (occurrence: None)
  Receive Date: 20080114
  Receipt Date: 20071203
  Transmission Date: 20080703
  Serious: Yes (Death)
  Sender: FDA-Public Use
  Company Number: CA-NOVOPROD-269129

PATIENT
  Age: 48 Year
  Sex: Female
  Weight: 84 kg

DRUGS (5)
  1. NIASTASE [Suspect]
     Indication: HAEMORRHAGE
     Dosage: 4.8 MG, UNK
     Route: 042
     Dates: start: 20060206
  2. FRESH FROZEN PLASMA [Concomitant]
     Dates: start: 20060205, end: 20060304
  3. PLATELETS [Concomitant]
     Dates: start: 20060206, end: 20060225
  4. RED BLOOD CELLS [Concomitant]
     Dates: start: 20060205, end: 20060303
  5. ALB [Concomitant]
     Dosage: UNK, UNK
     Dates: start: 20060211, end: 20060304

REACTIONS (1)
  - INTESTINAL ISCHAEMIA [None]
